FAERS Safety Report 6601943-0 (Version None)
Quarter: 2010Q1

REPORT INFORMATION
  Report Type: 
  Country: None (occurrence: None)
  Receive Date: 20100218
  Receipt Date: 20100208
  Transmission Date: 20100710
  Serious: Yes (Hospitalization)
  Sender: FDA-Public Use
  Company Number: 006625

PATIENT
  Age: 25 Year
  Sex: Female

DRUGS (5)
  1. KEPPRA [Suspect]
     Indication: EPILEPSY
     Dosage: 500 MG BID, 1000 MG BID
     Dates: end: 20091001
  2. KEPPRA [Suspect]
     Indication: EPILEPSY
     Dosage: 500 MG BID, 1000 MG BID
     Dates: start: 20091001
  3. DILANTIN [Suspect]
     Indication: CONVULSION
     Dosage: 300 MG QD
     Dates: end: 20100208
  4. PRENATAL VITAMINS /01549301/ [Concomitant]
  5. FOLIC ACID [Concomitant]

REACTIONS (3)
  - DRUG EXPOSURE DURING PREGNANCY [None]
  - GRAND MAL CONVULSION [None]
  - PREGNANCY [None]
